FAERS Safety Report 6080751-6 (Version None)
Quarter: 2009Q1

REPORT INFORMATION
  Report Type: 
  Country: None (occurrence: None)
  Receive Date: 20090217
  Receipt Date: 20090210
  Transmission Date: 20090719
  Serious: Yes (Other)
  Sender: FDA-Public Use
  Company Number: US-TEVA-185198USA

PATIENT
  Sex: Female

DRUGS (1)
  1. LOVASTATIN 10 MG, 20MG + 40 MG TABLETS [Suspect]

REACTIONS (1)
  - BLINDNESS [None]
